FAERS Safety Report 8433888-8 (Version None)
Quarter: 2012Q2

REPORT INFORMATION
  Report Type: 
  Country: None (occurrence: None)
  Receive Date: 20120613
  Receipt Date: 20120608
  Transmission Date: 20120825
  Serious: Yes (Hospitalization)
  Sender: FDA-Public Use
  Company Number: US-GILEAD-2012-0056177

PATIENT
  Sex: Female

DRUGS (1)
  1. LETAIRIS [Suspect]
     Indication: PULMONARY HYPERTENSION
     Dosage: 10 MG, UNK
     Route: 048
     Dates: start: 20100520

REACTIONS (5)
  - HEART RATE DECREASED [None]
  - BLOOD PRESSURE DECREASED [None]
  - SYNCOPE [None]
  - DYSPNOEA [None]
  - SICK SINUS SYNDROME [None]
